FAERS Safety Report 8609279-3 (Version None)
Quarter: 2012Q3

REPORT INFORMATION
  Report Type: 
  Country: None (occurrence: None)
  Receive Date: 20120821
  Receipt Date: 20120810
  Transmission Date: 20120928
  Serious: Yes (Other)
  Sender: FDA-Public Use
  Company Number: PHHY2012JP071816

PATIENT
  Sex: Male

DRUGS (6)
  1. DEPAKENE [Concomitant]
     Dosage: 400 MG, UNK
     Route: 048
     Dates: start: 20111226, end: 20120207
  2. MEILAX [Concomitant]
     Dosage: 1 MG, UNK
     Route: 048
     Dates: start: 20111219, end: 20120425
  3. GILENYA [Suspect]
     Indication: MULTIPLE SCLEROSIS
     Dosage: 0.5 MG, QD
     Route: 048
     Dates: start: 20120123
  4. LANSOPRAZOLE [Concomitant]
     Dosage: 15 MG, UNK
     Route: 048
     Dates: start: 20111216, end: 20120125
  5. LYRICA [Concomitant]
     Dosage: 150 MG, UNK
     Route: 048
     Dates: start: 20111221, end: 20120521
  6. CLONAZEPAM [Concomitant]
     Dosage: 0.5 MG, UNK
     Route: 048
     Dates: start: 20120607

REACTIONS (7)
  - LYMPHOCYTE COUNT DECREASED [None]
  - BRADYCARDIA [None]
  - WHITE BLOOD CELL COUNT DECREASED [None]
  - BLOOD ALKALINE PHOSPHATASE INCREASED [None]
  - GAMMA-GLUTAMYLTRANSFERASE INCREASED [None]
  - ALANINE AMINOTRANSFERASE INCREASED [None]
  - BLOOD PRESSURE DECREASED [None]
